FAERS Safety Report 5506030-0 (Version None)
Quarter: 2007Q4

REPORT INFORMATION
  Report Type: 
  Country: None (occurrence: None)
  Receive Date: 20071101
  Receipt Date: 20071017
  Transmission Date: 20080405
  Serious: Yes (Death, Hospitalization)
  Sender: FDA-Public Use
  Company Number: 163112ISR

PATIENT
  Age: 33 Year
  Sex: Male

DRUGS (1)
  1. DOXORUBICIN HCL [Suspect]

REACTIONS (7)
  - BLOOD POTASSIUM INCREASED [None]
  - ENCEPHALOPATHY [None]
  - HAEMODIALYSIS [None]
  - HEPATIC FAILURE [None]
  - HEPATIC NECROSIS [None]
  - RENAL FAILURE [None]
  - TUMOUR LYSIS SYNDROME [None]
